FAERS Safety Report 8610490-6 (Version None)
Quarter: 2012Q3

REPORT INFORMATION
  Report Type: 
  Country: None (occurrence: None)
  Receive Date: 20120822
  Receipt Date: 20120816
  Transmission Date: 20120928
  Serious: No
  Sender: FDA-Public Use
  Company Number: US-PFIZER INC-2012202140

PATIENT
  Age: 70 Year
  Sex: Female
  Weight: 77.1 kg

DRUGS (20)
  1. LOPERAMIDE [Concomitant]
     Indication: DIARRHOEA
     Dosage: UNK
  2. CITALOPRAM [Concomitant]
     Indication: DEPRESSION
     Dosage: 10 MG, UNK
  3. LOSARTAN [Concomitant]
     Dosage: UNK
  4. LOVAZA [Concomitant]
     Dosage: UNK
  5. ASCORBIC ACID [Concomitant]
     Dosage: UNK
  6. FOLIC ACID [Concomitant]
     Dosage: 400 UG, 1X/DAY
  7. METOPROLOL [Concomitant]
     Indication: HYPERTENSION
     Dosage: 25 MG, UNK
  8. AZELASTINE [Concomitant]
     Indication: HYPERSENSITIVITY
     Dosage: UNK
  9. COUMADIN [Concomitant]
     Dosage: 5 MG, UNK
  10. VITAMIN D [Concomitant]
     Dosage: UNK
  11. CO-Q-10 [Concomitant]
     Dosage: 100 MG, UNK
  12. MAXZIDE [Concomitant]
  13. TIKOSYN [Suspect]
     Indication: ATRIAL FIBRILLATION
     Dosage: 250 UG, 2X/DAY
     Route: 048
     Dates: start: 20120802
  14. FEXOFENADINE [Concomitant]
     Indication: HYPERSENSITIVITY
  15. HYDROCHLOROTHIAZIDE [Concomitant]
     Dosage: UNK
  16. AMLODIPINE BESYLATE [Suspect]
     Dosage: 5 MG, UNK
  17. SYNTHROID [Concomitant]
     Indication: HYPOTHYROIDISM
     Dosage: 0.075 MG, UNK
  18. CRESTOR [Concomitant]
     Indication: HYPERLIPIDAEMIA
     Dosage: 20 MG, UNK
  19. POTASSIUM [Concomitant]
     Indication: BLOOD POTASSIUM DECREASED
     Dosage: 20 MEQ, 2X/DAY
  20. NASONEX [Concomitant]
     Indication: HYPERSENSITIVITY
     Dosage: UNK

REACTIONS (4)
  - DIZZINESS [None]
  - ATRIAL FIBRILLATION [None]
  - HOT FLUSH [None]
  - FEELING ABNORMAL [None]
